FAERS Safety Report 25889685 (Version 1)
Quarter: 2025Q4

REPORT INFORMATION
  Report Type: Report from Study
  Country: US (occurrence: US)
  Receive Date: 20251007
  Receipt Date: 20251007
  Transmission Date: 20260118
  Serious: Yes (Other)
  Sender: ALEXION PHARMACEUTICALS
  Company Number: US-AstraZeneca-CH-00961118A

PATIENT
  Sex: Female

DRUGS (1)
  1. DANICOPAN [Suspect]
     Active Substance: DANICOPAN
     Route: 065

REACTIONS (1)
  - Hepatotoxicity [Unknown]
